FAERS Safety Report 7360487 (Version 7)
Quarter: 2014Q4

REPORT INFORMATION
  Report Type: Spontaneous
  Country: JP (occurrence: JP)
  Receive Date: 20100420
  Receipt Date: 20141128
  Transmission Date: 20150529
  Serious: Yes (Hospitalization, Other)
  Sender: FDA-Public Use
  Company Number: PHHY2009JP39037

PATIENT
  Age: 60 Year
  Sex: Male
  Weight: 79 kg

DRUGS (7)
  1. MUCOSTA [Concomitant]
     Active Substance: REBAMIPIDE
     Indication: GASTRITIS
     Dosage: 300 MG, UNK
     Route: 048
     Dates: start: 20090820
  2. CHAMPIX [Concomitant]
     Active Substance: VARENICLINE TARTRATE
     Indication: EX-TOBACCO USER
     Dosage: 0.5 MG, UNK
     Route: 048
     Dates: start: 20090905, end: 20090906
  3. BARACLUDE [Concomitant]
     Active Substance: ENTECAVIR
     Indication: CHRONIC HEPATITIS B
     Dosage: 0.5 UG, UNK
     Route: 048
     Dates: start: 20090521
  4. EPL [Concomitant]
     Active Substance: LECITHIN
     Indication: CHRONIC HEPATITIS B
     Dosage: 1500 MG, UNK
     Route: 048
     Dates: start: 20090521
  5. GLIVEC [Suspect]
     Active Substance: IMATINIB MESYLATE
     Indication: CHRONIC MYELOID LEUKAEMIA
     Dosage: 400 MG, QD
     Route: 048
     Dates: start: 20090527, end: 20090819
  6. GLIVEC [Suspect]
     Active Substance: IMATINIB MESYLATE
     Dosage: 200 MG, QD
     Route: 048
     Dates: start: 20090820, end: 20090906
  7. ADALAT CC [Concomitant]
     Active Substance: NIFEDIPINE
     Indication: HYPERTENSION
     Dosage: 20 MG, UNK
     Route: 048
     Dates: start: 20090521

REACTIONS (14)
  - Concomitant disease aggravated [Not Recovered/Not Resolved]
  - Blood lactate dehydrogenase increased [Unknown]
  - Haematocrit decreased [Unknown]
  - Hepatic steatosis [Not Recovered/Not Resolved]
  - Hepatitis B [Not Recovered/Not Resolved]
  - Interstitial lung disease [Recovered/Resolved]
  - Pneumonia [Unknown]
  - Viral infection [Unknown]
  - Dyspnoea [Not Recovered/Not Resolved]
  - Hyperlipidaemia [Not Recovered/Not Resolved]
  - Urticaria [Recovered/Resolved]
  - Fungal infection [Unknown]
  - Oxygen saturation decreased [Not Recovered/Not Resolved]
  - Red blood cell count decreased [Unknown]

NARRATIVE: CASE EVENT DATE: 200906
